FAERS Safety Report 18994676 (Version 2)
Quarter: 2021Q2

REPORT INFORMATION
  Report Type: Report from Study
  Country: DK (occurrence: DK)
  Receive Date: 20210311
  Receipt Date: 20210407
  Transmission Date: 20210717
  Serious: Yes (Hospitalization)
  Sender: FDA-Public Use
  Company Number: DK-ROCHE-2777552

PATIENT
  Age: 87 Year
  Sex: Male

DRUGS (11)
  1. PREDNISONE. [Suspect]
     Active Substance: PREDNISONE
     Indication: DIFFUSE LARGE B-CELL LYMPHOMA
     Dosage: ON 14/FEB/2021, HE RECEIVED THE MOST RECENT DOSE OF PREDNISONE
     Route: 048
     Dates: start: 20210108
  2. LEVOTHYROXINE. [Concomitant]
     Active Substance: LEVOTHYROXINE
     Indication: HYPOTHYROIDISM
     Route: 048
     Dates: start: 20121031
  3. POLATUZUMAB VEDOTIN. [Suspect]
     Active Substance: POLATUZUMAB VEDOTIN
     Indication: DIFFUSE LARGE B-CELL LYMPHOMA
     Dosage: ON 10/FEB/2021, HE RECEIVED MOST RECENT DOSE OF POLATUZUMAB
     Route: 042
     Dates: start: 20210121
  4. POTASSIUM CHLORIDE. [Concomitant]
     Active Substance: POTASSIUM CHLORIDE
     Route: 048
     Dates: start: 20210112
  5. ACICLOVIR [Concomitant]
     Active Substance: ACYCLOVIR
     Route: 048
     Dates: start: 20210112
  6. RITUXIMAB. [Suspect]
     Active Substance: RITUXIMAB
     Indication: DIFFUSE LARGE B-CELL LYMPHOMA
     Dosage: ON 10/FEB/2021, HE RECEIVED THE MOST RECENT DOSE OF RITUXIMAB PRIOR TO SERIOUS ADVERSE EVENT
     Route: 042
     Dates: start: 20210121
  7. CYCLOPHOSPHAMIDE. [Suspect]
     Active Substance: CYCLOPHOSPHAMIDE
     Indication: DIFFUSE LARGE B-CELL LYMPHOMA
     Dosage: ON 10/FEB/2021, HE RECEIVED THE MOST RECENT DOSE OF CYCLOPHOSPHAMIDE
     Route: 042
     Dates: start: 20210121
  8. GANGIDEN [Concomitant]
     Indication: CONSTIPATION
     Route: 048
     Dates: start: 20210108
  9. FUROSEMIDE. [Concomitant]
     Active Substance: FUROSEMIDE
     Route: 048
     Dates: start: 20210112
  10. DOXORUBICIN [Suspect]
     Active Substance: DOXORUBICIN
     Indication: DIFFUSE LARGE B-CELL LYMPHOMA
     Dosage: ON 10/FEB/2021, HE RECEIVED THE MOST RECENT DOSE OF DOXORUBICIN
     Route: 042
     Dates: start: 20210121
  11. SULFAMETHOXAZOLE;TRIMETHOPRIM [Concomitant]
     Active Substance: SULFAMETHOXAZOLE\TRIMETHOPRIM
     Dosage: DOSE: 400 MG/80 MG
     Route: 048
     Dates: start: 20210120

REACTIONS (3)
  - Pulmonary embolism [Recovered/Resolved]
  - Tumour lysis syndrome [Recovered/Resolved]
  - Pneumonia [Recovered/Resolved]

NARRATIVE: CASE EVENT DATE: 20210122
